FAERS Safety Report 10340053 (Version 3)
Quarter: 2014Q3

REPORT INFORMATION
  Report Type: Spontaneous
  Country: US (occurrence: None)
  Receive Date: 20140722
  Receipt Date: 20140807
  Transmission Date: 20150326
  Serious: Yes (Hospitalization)
  Sender: FDA-Public Use
  Company Number: UNT-2014-002634

PATIENT
  Age: 76 Year
  Sex: Male
  Weight: 79.4 kg

DRUGS (3)
  1. ADCIRCA [Concomitant]
     Active Substance: TADALAFIL
  2. LETAIRIS [Concomitant]
     Active Substance: AMBRISENTAN
  3. TYVASO [Suspect]
     Active Substance: TREPROSTINIL
     Indication: PULMONARY ARTERIAL HYPERTENSION
     Route: 055
     Dates: start: 20110919

REACTIONS (5)
  - Dyspnoea [None]
  - Asthenia [None]
  - Pulmonary hypertension [None]
  - Anaemia [None]
  - Disease complication [None]

NARRATIVE: CASE EVENT DATE: 20140613
